FAERS Safety Report 7593031-4 (Version None)
Quarter: 2011Q3

REPORT INFORMATION
  Report Type: 
  Country: None (occurrence: None)
  Receive Date: 20110706
  Receipt Date: 20110629
  Transmission Date: 20111222
  Serious: Yes (Hospitalization)
  Sender: FDA-Public Use
  Company Number: DE-ROCHE-779533

PATIENT
  Sex: Male
  Weight: 130.9 kg

DRUGS (1)
  1. CAPECITABINE [Suspect]
     Indication: RECTAL CANCER
     Dosage: ON DAY 1 TO 11, MOST RECENT DOSE ON: 23 MARCH 2011
     Route: 048
     Dates: start: 20110214

REACTIONS (3)
  - URINARY INCONTINENCE [None]
  - WOUND COMPLICATION [None]
  - DIABETES MELLITUS INADEQUATE CONTROL [None]
